FAERS Safety Report 13299056 (Version 4)
Quarter: 2018Q1

REPORT INFORMATION
  Report Type: Spontaneous
  Country: JP (occurrence: JP)
  Receive Date: 20170306
  Receipt Date: 20180312
  Transmission Date: 20180508
  Serious: Yes (Other)
  Sender: FDA-Public Use
  Company Number: PHJP2017JP006596

PATIENT
  Age: 40 Year
  Sex: Female
  Weight: 47.8 kg

DRUGS (2)
  1. COSENTYX [Suspect]
     Active Substance: SECUKINUMAB
     Indication: PSORIASIS
     Dosage: 300 MG, UNK
     Route: 058
     Dates: start: 20160801
  2. COSENTYX [Suspect]
     Active Substance: SECUKINUMAB
     Dosage: 300 MG, 4W
     Route: 058
     Dates: end: 20170216

REACTIONS (6)
  - Abdominal pain [Unknown]
  - Asthenia [Unknown]
  - Haematochezia [Unknown]
  - Lower gastrointestinal haemorrhage [Unknown]
  - Colitis ulcerative [Recovering/Resolving]
  - Occult blood [Unknown]

NARRATIVE: CASE EVENT DATE: 201612
